FAERS Safety Report 7605217-0 (Version None)
Quarter: 2011Q3

REPORT INFORMATION
  Report Type: 
  Country: None (occurrence: None)
  Receive Date: 20110712
  Receipt Date: 20110712
  Transmission Date: 20111222
  Serious: Yes (Hospitalization)
  Sender: FDA-Public Use
  Company Number: None

PATIENT
  Age: 86 Year
  Sex: Male
  Weight: 73 kg

DRUGS (2)
  1. AMPICILLIN AND SULBACTAM [Suspect]
     Indication: PLEURAL INFECTION
     Dosage: BID IV
     Route: 042
     Dates: start: 20110331, end: 20110408
  2. CIPROFLOXACIN [Suspect]
     Indication: PLEURAL INFECTION
     Dosage: 1 TAB BID PO
     Route: 048
     Dates: start: 20110330, end: 20110410

REACTIONS (4)
  - DISEASE RECURRENCE [None]
  - RENAL FAILURE ACUTE [None]
  - WHITE BLOOD CELL COUNT INCREASED [None]
  - CLOSTRIDIUM DIFFICILE COLITIS [None]
